FAERS Safety Report 8530125-0 (Version None)
Quarter: 2012Q3

REPORT INFORMATION
  Report Type: 
  Country: None (occurrence: None)
  Receive Date: 20120723
  Receipt Date: 20120718
  Transmission Date: 20120928
  Serious: Yes (Death, Other)
  Sender: FDA-Public Use
  Company Number: PHHY2012CA062335

PATIENT
  Sex: Female
  Weight: 1.4 kg

DRUGS (3)
  1. DIOVAN [Suspect]
     Dosage: MATERRNAL DOSE
     Route: 064
  2. ALDACTONE [Concomitant]
  3. LASIX [Concomitant]

REACTIONS (3)
  - KIDNEY MALFORMATION [None]
  - FOETAL EXPOSURE DURING PREGNANCY [None]
  - FOETAL DEATH [None]
